FAERS Safety Report 4551289-X (Version None)
Quarter: 2005Q1

REPORT INFORMATION
  Report Type: 
  Country: None (occurrence: None)
  Receive Date: 20050110
  Receipt Date: 20041230
  Transmission Date: 20050727
  Serious: Yes (Death, Life-Threatening, Hospitalization)
  Sender: FDA-Public Use
  Company Number: 2004121875

PATIENT
  Age: 70 Year
  Sex: Female

DRUGS (26)
  1. DIFLUCAN [Suspect]
     Indication: PNEUMONIA KLEBSIELLA
     Dosage: 50 MG (50 MG, 1 IN 1 D)
     Dates: start: 20041125, end: 20041209
  2. CIPROFLOXACIN [Concomitant]
  3. DOXYCYCLINE MONOHYDRATE (DOXYCYCLINE MONOHYDRATE) [Concomitant]
  4. WARFARIN SODIUM [Concomitant]
  5. DIGOXIN [Concomitant]
  6. ISOSORBIDE MONONITRATE [Concomitant]
  7. FERROUS ASPARTATE (FERROUS ASPARTATE) [Concomitant]
  8. GLIMEPIRIDE [Concomitant]
  9. ASPIRIN [Concomitant]
  10. FUROSEMIDE (FUROSEMIDE) [Concomitant]
  11. MONTELUKAST SODIUM (MONTELUKAST SODIUM) [Concomitant]
  12. SIMVASTATIN [Concomitant]
  13. ALLOPURINOL [Concomitant]
  14. BISOPROLOL FUMARATE [Concomitant]
  15. LOSARTAN POTASSIUM [Concomitant]
  16. PREDNISOLONE [Concomitant]
  17. ERDOSTEINE (ERDOSTEINE) [Concomitant]
  18. AMLODIPINE BESYLATE [Concomitant]
  19. FLUTICASONE PROPIONATE [Concomitant]
  20. THEOPHYLLINE [Concomitant]
  21. PANTOPRAZOLE SODIUM [Concomitant]
  22. LEVOCETIRIZINE DIHYDROCHLORIDE (LEVOCETIRIZINE DIHYDROCHLORIDE) [Concomitant]
  23. INSULIN ISOPHANE, HUMAN BIOSYNTHETIC (INSULIN ISOPHANE, HUMAN BIOSYNTH [Concomitant]
  24. SALMETEROL XINAFOATE (SALMETEROL XINAFOATE) [Concomitant]
  25. IPRATROPIUM BROMIDE [Concomitant]
  26. ZOPICLONE (ZOPICLONE) [Concomitant]

REACTIONS (4)
  - AGRANULOCYTOSIS [None]
  - LEUKOCYTOSIS [None]
  - MULTI-ORGAN DISORDER [None]
  - SEPSIS [None]
